FAERS Safety Report 8790723 (Version 1)
Quarter: 2012Q4

REPORT INFORMATION
  Report Type: Spontaneous
  Country: IE (occurrence: None)
  Receive Date: 20120910
  Receipt Date: 20120910
  Transmission Date: 20130627
  Serious: Yes (Disabling)
  Sender: FDA-Public Use
  Company Number: TPA2012A06188

PATIENT
  Age: 59 Year
  Sex: Male

DRUGS (5)
  1. ADENURIC [Suspect]
     Indication: GOUT
     Route: 048
     Dates: start: 20120529, end: 20120710
  2. COLCHICINE [Suspect]
     Indication: GOUT
     Dates: start: 20120424, end: 20120803
  3. DIALIS (TADALAFIL) [Concomitant]
  4. MICARDIS PLUS (HYDROCHLOROTHIAZIDE, TELMISARTAN) [Concomitant]
  5. STILNOCT (ZOLPIDEM TARTRATE) [Concomitant]

REACTIONS (4)
  - Myositis [None]
  - Asthenia [None]
  - Blood creatinine increased [None]
  - Muscular weakness [None]
